FAERS Safety Report 24465072 (Version 1)
Quarter: 2024Q4

REPORT INFORMATION
  Report Type: Report from Study
  Country: US (occurrence: US)
  Receive Date: 20241018
  Receipt Date: 20241018
  Transmission Date: 20250115
  Serious: No
  Sender: ROCHE
  Company Number: US-ROCHE-3524109

PATIENT
  Age: 36 Year
  Sex: Female
  Weight: 102.51 kg

DRUGS (12)
  1. XOLAIR [Suspect]
     Active Substance: OMALIZUMAB
     Indication: Urticaria
     Dosage: STRENGTH: 150 MG/ML
     Route: 058
  2. XOLAIR [Suspect]
     Active Substance: OMALIZUMAB
  3. ALLEGRA [Concomitant]
     Active Substance: FEXOFENADINE HYDROCHLORIDE
  4. CLARITIN [Concomitant]
     Active Substance: LORATADINE
  5. HYDROXYZINE [Concomitant]
     Active Substance: HYDROXYZINE HYDROCHLORIDE
  6. TRAZODONE [Concomitant]
     Active Substance: TRAZODONE HYDROCHLORIDE
     Route: 048
  7. XYZAL [Concomitant]
     Active Substance: LEVOCETIRIZINE DIHYDROCHLORIDE
     Route: 048
  8. BUPROPION HYDROCHLORIDE [Concomitant]
     Active Substance: BUPROPION HYDROCHLORIDE
     Route: 048
  9. FAMOTIDINE [Concomitant]
     Active Substance: FAMOTIDINE
     Route: 048
  10. PHENTERMINE [Concomitant]
     Active Substance: PHENTERMINE\PHENTERMINE HYDROCHLORIDE
     Route: 048
  11. TOPIRAMATE [Concomitant]
     Active Substance: TOPIRAMATE
     Route: 048
  12. OZEMPIC [Concomitant]
     Active Substance: SEMAGLUTIDE
     Route: 058

REACTIONS (2)
  - Anxiety disorder [Unknown]
  - Depression [Unknown]
